FAERS Safety Report 9004391 (Version 1)
Quarter: 2013Q1

REPORT INFORMATION
  Report Type: Spontaneous
  Country: US (occurrence: None)
  Receive Date: 20130104
  Receipt Date: 20130104
  Transmission Date: 20140127
  Serious: Yes (Life-Threatening, Hospitalization)
  Sender: FDA-Public Use
  Company Number: None

PATIENT
  Sex: 0

DRUGS (1)
  1. XARELTO [Suspect]
     Indication: ATRIAL FIBRILLATION
     Dosage: 15MG.  1 TIME DAILY  ORAL
     Route: 048
     Dates: start: 20120628, end: 20120907

REACTIONS (6)
  - Loss of consciousness [None]
  - Fall [None]
  - Contusion [None]
  - Pain [None]
  - Haemorrhage [None]
  - Anaemia [None]
